FAERS Safety Report 12687873 (Version 1)
Quarter: 2016Q3

REPORT INFORMATION
  Report Type: Spontaneous
  Country: US (occurrence: US)
  Receive Date: 20160825
  Receipt Date: 20160825
  Transmission Date: 20161109
  Serious: No
  Sender: FDA-Public Use
  Company Number: US-PFIZER INC-2016400209

PATIENT
  Age: 68 Year
  Sex: Female
  Weight: 70.76 kg

DRUGS (2)
  1. SYNTHROID [Concomitant]
     Active Substance: LEVOTHYROXINE SODIUM
     Dosage: UNK
  2. LYRICA [Suspect]
     Active Substance: PREGABALIN
     Indication: NEUROPATHY PERIPHERAL
     Dosage: 50 MG, 2X/DAY
     Route: 048
     Dates: start: 201607

REACTIONS (7)
  - Drug effect incomplete [Unknown]
  - Eye irritation [Not Recovered/Not Resolved]
  - Eye swelling [Recovered/Resolved]
  - Dry eye [Not Recovered/Not Resolved]
  - Hypersensitivity [Unknown]
  - Ocular hyperaemia [Recovering/Resolving]
  - Vision blurred [Not Recovered/Not Resolved]

NARRATIVE: CASE EVENT DATE: 201607
